FAERS Safety Report 22160477 (Version 1)
Quarter: 2023Q1

REPORT INFORMATION
  Report Type: Spontaneous
  Country: US (occurrence: US)
  Receive Date: 20230331
  Receipt Date: 20230331
  Transmission Date: 20230418
  Serious: No
  Sender: FDA-Public Use
  Company Number: US-AMNEAL PHARMACEUTICALS-2022-AMRX-02255

PATIENT
  Sex: Male

DRUGS (1)
  1. PRIMIDONE [Suspect]
     Active Substance: PRIMIDONE
     Indication: Product used for unknown indication
     Dosage: 50 MG AND 1 AND HALF MG TABLET , 2 /DAY
     Route: 065

REACTIONS (3)
  - Tremor [Unknown]
  - Product physical issue [Unknown]
  - Incorrect dose administered [Unknown]
